FAERS Safety Report 16498601 (Version 1)
Quarter: 2019Q2

REPORT INFORMATION
  Report Type: Spontaneous
  Country: ES (occurrence: ES)
  Receive Date: 20190629
  Receipt Date: 20190629
  Transmission Date: 20190711
  Serious: Yes (Other)
  Sender: FDA-Public Use
  Company Number: PHHY2019ES121829

PATIENT
  Age: 25 Year
  Sex: Female
  Weight: 66 kg

DRUGS (2)
  1. ELTROMBOPAG [Suspect]
     Active Substance: ELTROMBOPAG
     Indication: IMMUNE THROMBOCYTOPENIC PURPURA
     Dosage: 50/75 OT, FROM 1ST TO 6 WEEK IN PREGNANCY
     Route: 048
     Dates: start: 20190116, end: 20190507
  2. PREDNISONE. [Suspect]
     Active Substance: PREDNISONE
     Indication: IMMUNE THROMBOCYTOPENIC PURPURA
     Dosage: 10 MG, UNK, 6 TO 9 WEEKS OF PREGNANCY
     Route: 048
     Dates: start: 20190507

REACTIONS (3)
  - Abortion spontaneous [Unknown]
  - Maternal exposure during pregnancy [Unknown]
  - Anaemia [Unknown]

NARRATIVE: CASE EVENT DATE: 20190603
